FAERS Safety Report 8141240-8 (Version None)
Quarter: 2012Q1

REPORT INFORMATION
  Report Type: 
  Country: None (occurrence: None)
  Receive Date: 20120103
  Receipt Date: 20110918
  Transmission Date: 20120608
  Serious: No
  Sender: FDA-Public Use
  Company Number: AE-2011-001649

PATIENT
  Sex: Male
  Weight: 894.9469 kg

DRUGS (7)
  1. INCIVEK [Suspect]
     Dosage: 2250 MG (750 MG, 3 IN 1 D), ORAL
     Route: 048
     Dates: start: 20110907
  2. RIBAPAK (RIBAVIRIN) [Concomitant]
  3. PEGASYS [Concomitant]
  4. OMEGA 369 (CARBINOXAMINE MALEATE) [Concomitant]
  5. ASCORBIC ACID [Concomitant]
  6. VITAMIN D [Concomitant]
  7. MILK THISTLE (MULTIVITAMIN AND MINERAL SUPPLEMENT) [Concomitant]

REACTIONS (9)
  - NASAL CONGESTION [None]
  - NASAL DRYNESS [None]
  - DIARRHOEA [None]
  - ARTHRALGIA [None]
  - MENTAL DISORDER [None]
  - URTICARIA [None]
  - DYSGEUSIA [None]
  - HEADACHE [None]
  - FATIGUE [None]
